FAERS Safety Report 12083954 (Version 1)
Quarter: 2016Q1

REPORT INFORMATION
  Report Type: Spontaneous
  Country: US (occurrence: None)
  Receive Date: 20160216
  Receipt Date: 20160216
  Transmission Date: 20160526
  Serious: No
  Sender: FDA-Public Use
  Company Number: None

PATIENT
  Sex: Female

DRUGS (3)
  1. TOUJEO [Suspect]
     Active Substance: INSULIN GLARGINE
  2. PENICILLIN [Suspect]
     Active Substance: PENICILLIN
  3. CORTICOIDS [Suspect]
     Active Substance: UNSPECIFIED INGREDIENT

REACTIONS (5)
  - Drug hypersensitivity [None]
  - Dyspnoea [None]
  - Discomfort [None]
  - Drug ineffective [None]
  - Rash [None]
